FAERS Safety Report 4299776-6 (Version None)
Quarter: 2004Q1

REPORT INFORMATION
  Report Type: 
  Country: None (occurrence: None)
  Receive Date: 20040126
  Receipt Date: 20031113
  Transmission Date: 20041129
  Serious: No
  Sender: FDA-Public Use
  Company Number: USA031152496

PATIENT
  Age: 14 Year
  Sex: Male
  Weight: 28 kg

DRUGS (2)
  1. STRATTERA [Suspect]
     Indication: ATTENTION DEFICIT/HYPERACTIVITY DISORDER
     Dosage: 60 MG/DAY
     Dates: start: 20031012, end: 20031112
  2. WELLBUTRIN [Concomitant]

REACTIONS (6)
  - ABNORMAL BEHAVIOUR [None]
  - BLEPHAROSPASM [None]
  - DISTURBANCE IN ATTENTION [None]
  - PRESCRIBED OVERDOSE [None]
  - STARING [None]
  - WEIGHT INCREASED [None]
